FAERS Safety Report 7356438-6 (Version None)
Quarter: 2011Q1

REPORT INFORMATION
  Report Type: 
  Country: None (occurrence: None)
  Receive Date: 20110316
  Receipt Date: 20110201
  Transmission Date: 20110831
  Serious: No
  Sender: FDA-Public Use
  Company Number: US-BAYER-2011-014592

PATIENT
  Sex: Female
  Weight: 68 kg

DRUGS (1)
  1. ALEVE (CAPLET) [Suspect]
     Indication: HEADACHE
     Dosage: UNK
     Route: 048
     Dates: start: 20110101, end: 20110101

REACTIONS (2)
  - DERMATITIS BULLOUS [None]
  - RASH MACULAR [None]
